FAERS Safety Report 4894992-4 (Version None)
Quarter: 2006Q1

REPORT INFORMATION
  Report Type: 
  Country: None (occurrence: None)
  Receive Date: 20060130
  Receipt Date: 20050719
  Transmission Date: 20060701
  Serious: No
  Sender: FDA-Public Use
  Company Number: US-BRISTOL-MYERS SQUIBB COMPANY-13042718

PATIENT
  Age: 58 Year
  Sex: Male
  Weight: 120 kg

DRUGS (3)
  1. GLUCOPHAGE [Suspect]
     Indication: DIABETES MELLITUS
     Dates: start: 20050601
  2. ZOCOR [Concomitant]
     Indication: BLOOD CHOLESTEROL INCREASED
  3. ATIVAN [Concomitant]
     Indication: ANXIETY

REACTIONS (2)
  - DIARRHOEA [None]
  - PRURITUS [None]
